FAERS Safety Report 7028726-4 (Version None)
Quarter: 2010Q3

REPORT INFORMATION
  Report Type: 
  Country: None (occurrence: None)
  Receive Date: 20100920
  Receipt Date: 20100311
  Transmission Date: 20110219
  Serious: Yes (Other)
  Sender: FDA-Public Use
  Company Number: 2010032463

PATIENT
  Age: 37 Year
  Sex: Female
  Weight: 81.6 kg

DRUGS (3)
  1. DILANTIN-125 [Suspect]
     Indication: CONVULSION
     Dosage: TOTAL DAILY DOSE OF OF 500 MG DIVIDED 3X/DAY, ORAL
     Route: 048
  2. LIPITOR [Concomitant]
  3. PAXIL [Concomitant]

REACTIONS (2)
  - CONVULSION [None]
  - PRODUCT SUBSTITUTION ISSUE [None]
